FAERS Safety Report 25571349 (Version 1)
Quarter: 2025Q3

REPORT INFORMATION
  Report Type: Report from Study
  Country: IL (occurrence: IL)
  Receive Date: 20250717
  Receipt Date: 20250717
  Transmission Date: 20251021
  Serious: Yes (Other)
  Sender: TEVA
  Company Number: IL-TEVA-VS-3348295

PATIENT
  Age: 5 Year

DRUGS (4)
  1. DIAZEPAM [Suspect]
     Active Substance: DIAZEPAM
     Indication: Acquired epileptic aphasia
     Dosage: TWO EQUAL DOSES OF 1 MG/KG/DAY, ADMINISTERED ONCE DAILY WITH A 24 HOUR INTERVAL
     Route: 048
  2. FELBAMATE [Concomitant]
     Active Substance: FELBAMATE
     Indication: Acquired epileptic aphasia
     Route: 065
  3. CLOBAZAM [Concomitant]
     Active Substance: CLOBAZAM
     Indication: Acquired epileptic aphasia
     Route: 065
  4. AMANTADINE [Concomitant]
     Active Substance: AMANTADINE
     Indication: Product used for unknown indication
     Route: 065

REACTIONS (3)
  - Behaviour disorder [Unknown]
  - Agitation [Unknown]
  - Therapy non-responder [Unknown]
